FAERS Safety Report 9104047 (Version 2)
Quarter: 2013Q2

REPORT INFORMATION
  Report Type: Report from Study
  Country: CO (occurrence: CO)
  Receive Date: 20130219
  Receipt Date: 20130529
  Transmission Date: 20140414
  Serious: Yes (Hospitalization)
  Sender: FDA-Public Use
  Company Number: CO-ROCHE-1192118

PATIENT
  Age: 57 Year
  Sex: Female

DRUGS (2)
  1. RANIBIZUMAB [Suspect]
     Indication: RETINOPATHY
     Route: 050
     Dates: start: 20120609
  2. RANIBIZUMAB [Suspect]
     Route: 050
     Dates: start: 201208

REACTIONS (1)
  - Cystocele [Recovered/Resolved]
